FAERS Safety Report 25988607 (Version 1)
Quarter: 2025Q4

REPORT INFORMATION
  Report Type: Other
  Country: EU (occurrence: EU)
  Receive Date: 20251103
  Receipt Date: 20251103
  Transmission Date: 20260117
  Serious: Yes (Other)
  Sender: BIOCON
  Company Number: EU-EMA-DD-20240130-7483181-051606

PATIENT

DRUGS (7)
  1. ADALIMUMAB [Suspect]
     Active Substance: ADALIMUMAB
     Indication: Acne fulminans
     Dosage: 40 MILLIGRAM, Q2WK, DOSAGE1
     Route: 058
  2. ADALIMUMAB [Suspect]
     Active Substance: ADALIMUMAB
  3. ADALIMUMAB [Suspect]
     Active Substance: ADALIMUMAB
  4. ADALIMUMAB [Suspect]
     Active Substance: ADALIMUMAB
  5. ADALIMUMAB [Suspect]
     Active Substance: ADALIMUMAB
  6. ISOTRETINOIN [Suspect]
     Active Substance: ISOTRETINOIN
     Indication: Acne fulminans
     Dosage: UNK, 20-40 MILLIGRAM
     Route: 065
  7. PREDNISOLONE [Concomitant]
     Active Substance: PREDNISOLONE
     Indication: Acne fulminans
     Dosage: 25 MILLIGRAM (CONTINUED WITH 20-25 MILLIGRAM)
     Route: 065

REACTIONS (3)
  - Acne fulminans [Recovering/Resolving]
  - Seborrhoeic dermatitis [Recovering/Resolving]
  - Off label use [Unknown]
